FAERS Safety Report 8357225-2 (Version None)
Quarter: 2012Q2

REPORT INFORMATION
  Report Type: 
  Country: None (occurrence: None)
  Receive Date: 20120514
  Receipt Date: 20120501
  Transmission Date: 20120825
  Serious: Yes (Life-Threatening, Hospitalization, Other)
  Sender: FDA-Public Use
  Company Number: DK-ELI_LILLY_AND_COMPANY-DK201109006755

PATIENT
  Sex: Female
  Weight: 87 kg

DRUGS (5)
  1. ZYPREXA [Suspect]
     Indication: DEPRESSION
     Dosage: 20 MG, QD
     Route: 048
     Dates: start: 20070516
  2. METHADONE HCL [Concomitant]
     Indication: DRUG DEPENDENCE
     Dosage: 90 MG, QD
  3. CANNABIS [Concomitant]
     Dosage: UNK, QD
  4. ZYPREXA [Suspect]
     Dosage: 25 MG, QD
  5. DIAZEPAM [Concomitant]
     Indication: DRUG DEPENDENCE
     Dosage: 10-20 MG, QD

REACTIONS (14)
  - ABORTION SPONTANEOUS [None]
  - MATERNAL EXPOSURE DURING PREGNANCY [None]
  - BLOOD PHOSPHORUS [None]
  - RED BLOOD CELL COUNT DECREASED [None]
  - BLOOD IRON DECREASED [None]
  - PREMATURE SEPARATION OF PLACENTA [None]
  - OVERDOSE [None]
  - TRANSFERRIN INCREASED [None]
  - DRUG INTERACTION [None]
  - HAEMOGLOBIN DECREASED [None]
  - OFF LABEL USE [None]
  - SERUM FERRITIN DECREASED [None]
  - VITAMIN B12 DECREASED [None]
  - RED BLOOD CELL SEDIMENTATION RATE INCREASED [None]
